FAERS Safety Report 5651248-X (Version None)
Quarter: 2008Q1

REPORT INFORMATION
  Report Type: 
  Country: None (occurrence: None)
  Receive Date: 20080131
  Receipt Date: 20071219
  Transmission Date: 20080703
  Serious: No
  Sender: FDA-Public Use
  Company Number: US200712004230

PATIENT
  Age: 69 Year
  Sex: Female

DRUGS (3)
  1. BYETTA [Suspect]
     Indication: TYPE 2 DIABETES MELLITUS
     Dosage: 10 UG, SUBCUTANEOUS; 20 UG, SUBCUTANEOUS
     Route: 058
     Dates: start: 20071219, end: 20071219
  2. BYETTA [Suspect]
     Indication: TYPE 2 DIABETES MELLITUS
     Dosage: 10 UG, SUBCUTANEOUS; 20 UG, SUBCUTANEOUS
     Route: 058
     Dates: start: 20070601
  3. EXENATIDE 10MCG PEN, DISPOSABLE DEVICE (EXENATIDE PEN (10MCG))  PEN,DI [Concomitant]

REACTIONS (2)
  - DYSGEUSIA [None]
  - INCORRECT DOSE ADMINISTERED [None]
